FAERS Safety Report 9725498 (Version 1)
Quarter: 2013Q4

REPORT INFORMATION
  Report Type: Spontaneous
  Country: US (occurrence: None)
  Receive Date: 20131127
  Receipt Date: 20131127
  Transmission Date: 20140711
  Serious: Yes (Other)
  Sender: FDA-Public Use
  Company Number: 2013-US-003556

PATIENT
  Age: 63 Year
  Sex: Male

DRUGS (2)
  1. XYREM (SODIUM OXYBATE) (ORAL SOLUTION, 500MG/ML [Suspect]
     Indication: SOMNOLENCE
     Dosage: 3 G, BID, ORAL
     Route: 048
     Dates: start: 200904
  2. PROVIGIL (MODAFINIL) TABLET, 200 MG [Concomitant]

REACTIONS (4)
  - Sleep apnoea syndrome [None]
  - Atrial fibrillation [None]
  - Fatigue [None]
  - Hypersomnia [None]
